FAERS Safety Report 7729466-6 (Version None)
Quarter: 2011Q3

REPORT INFORMATION
  Report Type: 
  Country: None (occurrence: None)
  Receive Date: 20110906
  Receipt Date: 20110825
  Transmission Date: 20111222
  Serious: Yes (Death)
  Sender: FDA-Public Use
  Company Number: US-CELGENEUS-163-21880-11051895

PATIENT
  Sex: Male

DRUGS (8)
  1. GLIPIZIDE [Concomitant]
     Dosage: 10 MILLIGRAM
     Route: 065
  2. DILAUDID [Concomitant]
     Indication: PAIN
     Dosage: 4 MILLIGRAM
     Route: 065
  3. METOPROLOL SUCCINATE EXTENDED RELEASE [Concomitant]
     Dosage: 100 MILLIGRAM
     Route: 065
  4. LISINOPRIL [Concomitant]
     Dosage: 20 MILLIGRAM
     Route: 065
  5. REVLIMID [Suspect]
     Dosage: 25 MILLIGRAM
     Route: 048
     Dates: start: 20110315, end: 20110509
  6. PIOGLITAZONE [Concomitant]
     Route: 065
  7. METFORMIN HCL [Concomitant]
     Dosage: 1000 MILLIGRAM
     Route: 065
  8. EZETIMIBE/SIMVASTATIN [Concomitant]
     Route: 065

REACTIONS (2)
  - DRUG INEFFECTIVE [None]
  - LARYNGEAL CANCER STAGE IV [None]
